FAERS Safety Report 8453618-3 (Version None)
Quarter: 2012Q2

REPORT INFORMATION
  Report Type: 
  Country: None (occurrence: None)
  Receive Date: 20120620
  Receipt Date: 20120613
  Transmission Date: 20120825
  Serious: Yes (Hospitalization, Disabling, Other)
  Sender: FDA-Public Use
  Company Number: US-MERCK-1111USA00986

PATIENT
  Age: 56 Year
  Sex: Female
  Weight: 83 kg

DRUGS (16)
  1. FOSAMAX [Suspect]
     Indication: OSTEOPOROSIS
     Route: 048
     Dates: start: 20050201, end: 20080701
  2. OS-CAL (CALCIUM CARBONATE) [Concomitant]
     Route: 065
  3. FOSAMAX [Suspect]
     Route: 048
  4. ACTONEL [Suspect]
     Route: 048
  5. CYTOXAN [Concomitant]
     Route: 065
  6. PREDNISONE TAB [Suspect]
     Route: 048
     Dates: start: 20030101
  7. ASPIRIN [Concomitant]
     Route: 065
  8. FOSAMAX [Suspect]
     Indication: OSTEOPENIA
     Route: 048
     Dates: start: 20050201, end: 20080701
  9. ALENDRONATE SODIUM [Suspect]
     Indication: OSTEOPENIA
     Route: 048
     Dates: start: 20080813, end: 20101101
  10. LIPITOR [Concomitant]
     Route: 065
  11. ESTRACE [Concomitant]
     Route: 067
  12. NORVASC [Concomitant]
     Route: 065
  13. FOSAMAX [Suspect]
     Route: 048
  14. AXID [Concomitant]
     Route: 065
  15. VITAMIN D (UNSPECIFIED) [Concomitant]
     Route: 065
  16. CLARINEX [Concomitant]
     Route: 065

REACTIONS (56)
  - PETECHIAE [None]
  - VISUAL IMPAIRMENT [None]
  - ARTHRALGIA [None]
  - INTERSTITIAL LUNG DISEASE [None]
  - FEMUR FRACTURE [None]
  - CHOLELITHIASIS [None]
  - BLISTER [None]
  - HYPOPARATHYROIDISM [None]
  - BASEDOW'S DISEASE [None]
  - RASH [None]
  - PYODERMA [None]
  - PYELONEPHRITIS [None]
  - OEDEMA [None]
  - LEFT VENTRICULAR END-DIASTOLIC PRESSURE INCREASED [None]
  - ANGINA PECTORIS [None]
  - CELLULITIS [None]
  - ABDOMINAL PAIN [None]
  - CONJUNCTIVITIS [None]
  - HYPOTHYROIDISM [None]
  - CUTANEOUS VASCULITIS [None]
  - PNEUMONIA [None]
  - TRIGGER FINGER [None]
  - NIGHT SWEATS [None]
  - APPENDICITIS [None]
  - DEVICE FAILURE [None]
  - PAIN IN EXTREMITY [None]
  - URINARY TRACT INFECTION [None]
  - UPPER RESPIRATORY TRACT INFECTION [None]
  - BURSITIS [None]
  - CHEST PAIN [None]
  - FRACTURE NONUNION [None]
  - ARTHROPATHY [None]
  - PLEURAL EFFUSION [None]
  - ILEUS [None]
  - FALL [None]
  - HAEMORRHAGIC DISORDER [None]
  - VISION BLURRED [None]
  - SINUSITIS [None]
  - SKIN LESION [None]
  - BRONCHITIS [None]
  - ADVERSE DRUG REACTION [None]
  - DYSPNOEA [None]
  - TENOSYNOVITIS [None]
  - NEPHROLITHIASIS [None]
  - IMPAIRED HEALING [None]
  - HAEMATURIA [None]
  - LOW TURNOVER OSTEOPATHY [None]
  - DERMATITIS CONTACT [None]
  - CARDIAC DISORDER [None]
  - HYPERTHYROIDISM [None]
  - SKIN GRAFT FAILURE [None]
  - SINUS TACHYCARDIA [None]
  - ARTHROPOD BITE [None]
  - LEUKOCYTOCLASTIC VASCULITIS [None]
  - MYOCARDIAL ISCHAEMIA [None]
  - AUTOIMMUNE DISORDER [None]
